FAERS Safety Report 4552262-8 (Version None)
Quarter: 2004Q4

REPORT INFORMATION
  Report Type: 
  Country: None (occurrence: None)
  Receive Date: 20041217
  Receipt Date: 20040802
  Transmission Date: 20050328
  Serious: No
  Sender: FDA-Public Use
  Company Number: 2004-BP-06425BP

PATIENT
  Age: 64 Year
  Sex: Female

DRUGS (4)
  1. SPIRIVA [Suspect]
     Indication: CHRONIC OBSTRUCTIVE AIRWAYS DISEASE
     Dosage: 18 MCG (18 MCG), IH
     Route: 055
     Dates: start: 20040716
  2. SPIRIVA [Suspect]
  3. DIAZIDE (GLICLAZIDE) [Concomitant]
  4. OXAZEPAM [Concomitant]

REACTIONS (1)
  - DYSPNOEA [None]
